FAERS Safety Report 11492717 (Version 1)
Quarter: 2015Q3

REPORT INFORMATION
  Report Type: Spontaneous
  Country: US (occurrence: US)
  Receive Date: 20150910
  Receipt Date: 20150910
  Transmission Date: 20151125
  Serious: Yes (Other)
  Sender: FDA-Public Use
  Company Number: CHPA2015US010416

PATIENT
  Sex: Female

DRUGS (6)
  1. VOLTAREN [Suspect]
     Active Substance: DICLOFENAC SODIUM
     Indication: BACK PAIN
  2. EPSOM SALT [Suspect]
     Active Substance: MAGNESIUM SULFATE
     Indication: PRODUCT USED FOR UNKNOWN INDICATION
     Dosage: UNK
     Route: 065
     Dates: start: 20150902
  3. VOLTAREN [Suspect]
     Active Substance: DICLOFENAC SODIUM
     Indication: ARTHRALGIA
     Dosage: UNK
     Route: 065
     Dates: start: 2012
  4. VOLTAREN [Suspect]
     Active Substance: DICLOFENAC SODIUM
     Indication: INTERVERTEBRAL DISC DEGENERATION
  5. VOLTAREN [Suspect]
     Active Substance: DICLOFENAC SODIUM
     Indication: MUSCULOSKELETAL PAIN
  6. VOLTAREN [Suspect]
     Active Substance: DICLOFENAC SODIUM
     Indication: BURNING SENSATION

REACTIONS (8)
  - Back pain [Unknown]
  - Intervertebral disc degeneration [Unknown]
  - Product use issue [Unknown]
  - Drug administered at inappropriate site [Unknown]
  - Rotator cuff syndrome [Unknown]
  - Musculoskeletal pain [Unknown]
  - Drug ineffective for unapproved indication [Unknown]
  - Burning sensation [Recovering/Resolving]

NARRATIVE: CASE EVENT DATE: 2013
